FAERS Safety Report 19065624 (Version 1)
Quarter: 2021Q1

REPORT INFORMATION
  Report Type: Report from Study
  Country: US (occurrence: US)
  Receive Date: 20210327
  Receipt Date: 20210327
  Transmission Date: 20210420
  Serious: Yes (Death, Hospitalization, Other)
  Sender: FDA-Public Use
  Company Number: US-SHIRE-US202021762

PATIENT
  Sex: Male

DRUGS (1)
  1. HUMAN NORMAL IMMUNOGLOBULIN; LIQUID [Suspect]
     Active Substance: HUMAN IMMUNOGLOBULIN G
     Indication: PRIMARY IMMUNODEFICIENCY SYNDROME
     Route: 042

REACTIONS (4)
  - Inappropriate schedule of product administration [Unknown]
  - Death [Fatal]
  - Amyotrophic lateral sclerosis [Unknown]
  - General physical health deterioration [Unknown]
